FAERS Safety Report 6173196-1 (Version None)
Quarter: 2009Q2

REPORT INFORMATION
  Report Type: 
  Country: None (occurrence: None)
  Receive Date: 20090428
  Receipt Date: 20090327
  Transmission Date: 20091009
  Serious: Yes (Hospitalization)
  Sender: FDA-Public Use
  Company Number: 2009SP006510

PATIENT
  Age: 7 Year
  Sex: Male
  Weight: 20 kg

DRUGS (5)
  1. CLARITIN [Suspect]
     Indication: RHINITIS ALLERGIC
     Dosage: 10 MG; PO
     Route: 048
     Dates: start: 20090220, end: 20090305
  2. HOKUNALIN (TULOBUTEROL HYDROCHLORIDE) [Suspect]
     Indication: BRONCHITIS
     Dosage: 1 MG; TDER
     Route: 062
     Dates: start: 20090304, end: 20090305
  3. CLARITHROMYCIN [Suspect]
     Indication: BRONCHITIS
     Dosage: 2.3 GM; PO
     Route: 048
     Dates: start: 20090304
  4. ASVERIN (CON.) [Concomitant]
  5. MUCODYNE DS (CON.) [Concomitant]

REACTIONS (2)
  - CHEST PAIN [None]
  - TACHYCARDIA [None]
